FAERS Safety Report 16950588 (Version 1)
Quarter: 2019Q4

REPORT INFORMATION
  Report Type: Spontaneous
  Country: US (occurrence: US)
  Receive Date: 20191023
  Receipt Date: 20191023
  Transmission Date: 20200122
  Serious: No
  Sender: FDA-Public Use
  Company Number: US-BAYER-2019-187708

PATIENT
  Age: 25 Year
  Sex: Female

DRUGS (1)
  1. GADAVIST [Suspect]
     Active Substance: GADOBUTROL
     Indication: SCAN BRAIN
     Dosage: 7.5 ML, ONCE
     Route: 042
     Dates: start: 20191011, end: 20191011

REACTIONS (4)
  - Headache [None]
  - Pain [None]
  - Nausea [None]
  - Dysphonia [None]

NARRATIVE: CASE EVENT DATE: 20191011
